FAERS Safety Report 19015428 (Version 1)
Quarter: 2021Q1

REPORT INFORMATION
  Report Type: Other
  Country: US (occurrence: US)
  Receive Date: 20210316
  Receipt Date: 20210316
  Transmission Date: 20210420
  Serious: Yes (Hospitalization)
  Sender: FDA-Public Use
  Company Number: US-LARKEN LABORATORIES, INC.-2108053

PATIENT
  Age: 55 Year
  Sex: Male

DRUGS (1)
  1. DOXYCYCLINE HYCLATE TABLET [Suspect]
     Active Substance: DOXYCYCLINE HYCLATE
     Indication: CELLULITIS
     Route: 048

REACTIONS (1)
  - Pancreatitis acute [Recovered/Resolved]
